FAERS Safety Report 9886315 (Version 1)
Quarter: 2014Q1

REPORT INFORMATION
  Report Type: Spontaneous
  Country: ES (occurrence: ES)
  Receive Date: 20140210
  Receipt Date: 20140210
  Transmission Date: 20141002
  Serious: Yes (Hospitalization, Other)
  Sender: FDA-Public Use
  Company Number: ES-WATSON-2014-01807

PATIENT
  Age: 35 Year
  Sex: Male

DRUGS (4)
  1. ALLOPURINOL (UNKNOWN) [Suspect]
     Indication: HYPERURICAEMIA
     Dosage: 100 MG, DAILY
     Route: 065
  2. L-THYROXINE                        /00068001/ [Concomitant]
     Indication: POLYGLANDULAR AUTOIMMUNE SYNDROME TYPE II
     Dosage: 100 MG, DAILY
     Route: 065
  3. HYDROCORTISONE [Concomitant]
     Indication: POLYGLANDULAR AUTOIMMUNE SYNDROME TYPE II
     Dosage: 20 MG, DAILY
     Route: 065
  4. TESTOSTERONE [Concomitant]
     Indication: POLYGLANDULAR AUTOIMMUNE SYNDROME TYPE II
     Dosage: FORTNIGHTLY
     Route: 042

REACTIONS (1)
  - Drug reaction with eosinophilia and systemic symptoms [Recovering/Resolving]
